FAERS Safety Report 26107271 (Version 1)
Quarter: 2025Q4

REPORT INFORMATION
  Report Type: Spontaneous
  Country: US (occurrence: None)
  Receive Date: 20251126
  Receipt Date: 20251126
  Transmission Date: 20260117
  Serious: Yes (Other)
  Sender: FDA-CTU
  Company Number: None

PATIENT
  Sex: Male

DRUGS (1)
  1. ZONISAMIDE [Suspect]
     Active Substance: ZONISAMIDE
     Dosage: OTHER QUANTITY : 2 TABLET(S);?FREQUENCY : AT BEDTIME;?
     Route: 048

REACTIONS (6)
  - Abdominal pain [None]
  - Decreased appetite [None]
  - Taste disorder [None]
  - Insomnia [None]
  - Ataxia [None]
  - Dizziness [None]

NARRATIVE: CASE EVENT DATE: 20251126
